FAERS Safety Report 26059361 (Version 1)
Quarter: 2025Q4

REPORT INFORMATION
  Report Type: Spontaneous
  Country: EU (occurrence: EU)
  Receive Date: 20251118
  Receipt Date: 20251118
  Transmission Date: 20260118
  Serious: Yes (Death, Other)
  Sender: CHEPLAPHARM
  Company Number: None

PATIENT
  Age: 26 Year
  Sex: Female

DRUGS (8)
  1. QUETIAPINE [Suspect]
     Active Substance: QUETIAPINE
     Dosage: UNKNOWN
     Route: 048
     Dates: end: 202301
  2. METHADONE [Suspect]
     Active Substance: METHADONE HYDROCHLORIDE
     Dosage: UNKNOWN
     Dates: end: 202301
  3. COCAINE [Suspect]
     Active Substance: COCAINE
     Dosage: UNKNOWN
     Dates: end: 202301
  4. DIAZEPAM [Suspect]
     Active Substance: DIAZEPAM
     Dosage: UNKNOWN
     Route: 048
     Dates: end: 202301
  5. PAROXETINE HYDROCHLORIDE [Suspect]
     Active Substance: PAROXETINE HYDROCHLORIDE
     Dosage: UNKNOWN
     Route: 048
     Dates: end: 202301
  6. OXAZEPAM [Suspect]
     Active Substance: OXAZEPAM
  7. IBUPROFEN [Suspect]
     Active Substance: IBUPROFEN
  8. ALCOHOL [Suspect]
     Active Substance: ALCOHOL

REACTIONS (6)
  - Drug abuse [Fatal]
  - Cardio-respiratory arrest [Fatal]
  - Toxicity to various agents [Fatal]
  - Cardiac failure acute [Unknown]
  - Asphyxia [Unknown]
  - Bladder dilatation [Unknown]
